FAERS Safety Report 15373583 (Version 2)
Quarter: 2019Q1

REPORT INFORMATION
  Report Type: Spontaneous
  Country: US (occurrence: US)
  Receive Date: 20180912
  Receipt Date: 20190227
  Transmission Date: 20190417
  Serious: Yes (Hospitalization)
  Sender: FDA-Public Use
  Company Number: US-PFIZER INC-2018367164

PATIENT
  Age: 19 Year
  Sex: Female

DRUGS (14)
  1. SANCTURA [Concomitant]
     Active Substance: TROSPIUM CHLORIDE
     Dosage: 20 MG, UNK [20 MG- 3X]
  2. VITAMIN B12 [Concomitant]
     Active Substance: CYANOCOBALAMIN
     Dosage: UNK UNK, MONTHLY (4000 U- 1 MONTHLY)
  3. LYRICA [Suspect]
     Active Substance: PREGABALIN
     Indication: FIBROMYALGIA
     Dosage: 100 MG, UNK [100 MG-3X]
  4. IMITREX [Concomitant]
     Active Substance: SUMATRIPTAN SUCCINATE
     Dosage: 100 MG, AS NEEDED
  5. LISINOPRIL. [Concomitant]
     Active Substance: LISINOPRIL
     Dosage: 2.5 MG, UNK [2.5 MG- 1]
  6. KLONOPIN [Concomitant]
     Active Substance: CLONAZEPAM
     Dosage: 0.5 MG, UNK [0.5 MG- 1X]
  7. CELEBREX [Suspect]
     Active Substance: CELECOXIB
     Indication: OSTEOARTHRITIS
     Dosage: 100 MG, UNK [100 MG-2X]
     Dates: start: 2000
  8. ELMIRON [Concomitant]
     Active Substance: PENTOSAN POLYSULFATE SODIUM
     Dosage: 100 MG, UNK [100 MG- 3X ]
  9. VALTREX [Concomitant]
     Active Substance: VALACYCLOVIR HYDROCHLORIDE
     Dosage: 900 MG, UNK [900 MG- 1X]
  10. DICYCLOMINE [Concomitant]
     Active Substance: DICYCLOMINE HYDROCHLORIDE
     Dosage: 10 MG, UNK [10 MG- 4X]
  11. XIFAXAN [Concomitant]
     Active Substance: RIFAXIMIN
     Dosage: 550 MG, UNK [550 MG- 2X]
  12. PREMARIN [Suspect]
     Active Substance: ESTROGENS, CONJUGATED
     Indication: VULVOVAGINAL DRYNESS
     Dosage: 0.625 MG/G, UNK
     Dates: start: 1977
  13. HYDROCODONE [HYDROCODONE BITARTRATE] [Concomitant]
     Dosage: UNK [10/325- 3X]
  14. SYNTHROID [Concomitant]
     Active Substance: LEVOTHYROXINE SODIUM
     Dosage: 100 MG, UNK [100 MG- 1 ]

REACTIONS (2)
  - Dyspepsia [Not Recovered/Not Resolved]
  - Fibrocystic breast disease [Not Recovered/Not Resolved]

NARRATIVE: CASE EVENT DATE: 19760928
